FAERS Safety Report 5797506-X (Version None)
Quarter: 2008Q2

REPORT INFORMATION
  Report Type: 
  Country: None (occurrence: None)
  Receive Date: 20080630
  Receipt Date: 20080616
  Transmission Date: 20081010
  Serious: Yes (Hospitalization)
  Sender: FDA-Public Use
  Company Number: 029756

PATIENT
  Age: 50 Year
  Sex: Female

DRUGS (12)
  1. METFORMIN HYDROCHLORIDE [Suspect]
  2. HYDROCHLOROTHIAZIDE [Suspect]
  3. CELECOXIB [Suspect]
     Indication: ARTHRALGIA
  4. CANDESARTAN CILEXETIL [Suspect]
  5. LEVOTHYROXINE SODIUM [Concomitant]
  6. ACETAMINOPHEN W/CODEINE (CODEINE) [Concomitant]
  7. ASPIRIN [Concomitant]
  8. SIMVASTATIN [Concomitant]
  9. OMEPRAZOLE [Concomitant]
  10. PREGABALIN [Concomitant]
  11. TIZANIDINE HCL [Concomitant]
  12. ARIPIPRAZOLE [Concomitant]

REACTIONS (21)
  - ABDOMINAL PAIN UPPER [None]
  - ABDOMINAL TENDERNESS [None]
  - ASTHENIA [None]
  - BLOOD GLUCOSE DECREASED [None]
  - BLOOD PRESSURE DIASTOLIC DECREASED [None]
  - BREATH SOUNDS ABNORMAL [None]
  - CHROMATURIA [None]
  - DRUG TOXICITY [None]
  - ELECTROCARDIOGRAM QRS COMPLEX PROLONGED [None]
  - HAEMATEMESIS [None]
  - HAEMODIALYSIS [None]
  - LACTIC ACIDOSIS [None]
  - NAUSEA [None]
  - OCCULT BLOOD POSITIVE [None]
  - PANCREATITIS ACUTE [None]
  - PROTEIN URINE PRESENT [None]
  - RENAL FAILURE ACUTE [None]
  - SINUS TACHYCARDIA [None]
  - SOMNOLENCE [None]
  - VENTRICULAR EXTRASYSTOLES [None]
  - VOMITING [None]
